FAERS Safety Report 4616361-4 (Version None)
Quarter: 2005Q1

REPORT INFORMATION
  Report Type: 
  Country: None (occurrence: None)
  Receive Date: 20050321
  Receipt Date: 20050311
  Transmission Date: 20050727
  Serious: Yes (Death)
  Sender: FDA-Public Use
  Company Number: 2004UW07853

PATIENT
  Age: 26 Year
  Sex: Male
  Weight: 145.151 kg

DRUGS (14)
  1. SEROQUEL [Suspect]
     Dosage: 200-400 MG
     Dates: start: 20031003
  2. LEXAPRO [Concomitant]
  3. NEURONTIN [Concomitant]
  4. RESTORIL [Concomitant]
  5. KLONOPIN [Concomitant]
  6. CEPHALEXIN [Concomitant]
  7. PERCOCET [Concomitant]
  8. ASPIRIN [Concomitant]
  9. TYLENOL (CAPLET) [Concomitant]
  10. ALUMINUM HYDROXIDE AND MAGNESIUM TRISILICATE [Concomitant]
  11. BENADRYL ^PARKE DAVIS^ /ISR/ [Concomitant]
  12. MILK OF MAGNESIA [Concomitant]
  13. COGENTIN [Concomitant]
  14. METAMUCIL ^SEARLE^ [Concomitant]

REACTIONS (5)
  - CHILLS [None]
  - FEELING HOT [None]
  - HYPERHIDROSIS [None]
  - INSOMNIA [None]
  - RESPIRATORY ARREST [None]
